FAERS Safety Report 12850870 (Version 1)
Quarter: 2016Q4

REPORT INFORMATION
  Report Type: Other
  Country: GB (occurrence: JP)
  Receive Date: 20161014
  Receipt Date: 20161014
  Transmission Date: 20170207
  Serious: Yes (Death, Hospitalization)
  Sender: FDA-Public Use
  Company Number: JP-INTERNATIONAL MEDICATION SYSTEMS, LIMITED-1058393

PATIENT
  Age: 14 Year
  Sex: Female

DRUGS (5)
  1. PENTAZOCINE [Suspect]
     Active Substance: PENTAZOCINE
  2. MORPHINE SULFATE. [Suspect]
     Active Substance: MORPHINE SULFATE
  3. TRAMADOL. [Concomitant]
     Active Substance: TRAMADOL
  4. MORPHINE [Suspect]
     Active Substance: MORPHINE
     Indication: PAIN IN EXTREMITY
  5. GABAPENTIN. [Concomitant]
     Active Substance: GABAPENTIN

REACTIONS (5)
  - Death [Fatal]
  - Drug ineffective [None]
  - Ileus paralytic [Recovering/Resolving]
  - Sedation [Recovering/Resolving]
  - Mental status changes [Recovering/Resolving]
